FAERS Safety Report 24696376 (Version 3)
Quarter: 2025Q3

REPORT INFORMATION
  Report Type: Report from Study
  Country: BR (occurrence: BR)
  Receive Date: 20241204
  Receipt Date: 20250802
  Transmission Date: 20251020
  Serious: Yes (Other)
  Sender: ALEXION PHARMACEUTICALS
  Company Number: BR-AstraZeneca-CH-00753087A

PATIENT
  Age: 41 Year
  Sex: Female

DRUGS (2)
  1. SOLIRIS [Suspect]
     Active Substance: ECULIZUMAB
     Indication: Paroxysmal nocturnal haemoglobinuria
     Dosage: 600 MILLIGRAM, QW
     Dates: start: 20210426, end: 20210615
  2. SOLIRIS [Suspect]
     Active Substance: ECULIZUMAB

REACTIONS (6)
  - Abdominal injury [Recovered/Resolved]
  - Ocular icterus [Recovered/Resolved]
  - Headache [Recovered/Resolved]
  - Stress [Recovered/Resolved]
  - Insurance issue [Unknown]
  - Symptom recurrence [Recovered/Resolved]

NARRATIVE: CASE EVENT DATE: 20241120
